FAERS Safety Report 16123560 (Version 1)
Quarter: 2019Q1

REPORT INFORMATION
  Report Type: Spontaneous
  Country: JP (occurrence: JP)
  Receive Date: 20190327
  Receipt Date: 20190327
  Transmission Date: 20190418
  Serious: Yes (Other)
  Sender: FDA-Public Use
  Company Number: JP-PFIZER INC-2019132275

PATIENT
  Age: 64 Year
  Sex: Male

DRUGS (1)
  1. ANCARON [Suspect]
     Active Substance: AMIODARONE HYDROCHLORIDE
     Dosage: UNK
     Route: 048

REACTIONS (5)
  - Shock [Unknown]
  - Collagen disorder [Unknown]
  - Blood pressure decreased [Unknown]
  - Bradycardia [Unknown]
  - Pulmonary sepsis [Unknown]
